FAERS Safety Report 21312469 (Version 1)
Quarter: 2022Q3

REPORT INFORMATION
  Report Type: Spontaneous
  Country: US (occurrence: None)
  Receive Date: 20220909
  Receipt Date: 20220909
  Transmission Date: 20221026
  Serious: No
  Sender: FDA-Public Use
  Company Number: US-ARIS GLOBAL-202206-1113

PATIENT
  Age: 80 Year
  Sex: Female
  Weight: 74.002 kg

DRUGS (19)
  1. OXERVATE [Suspect]
     Active Substance: CENEGERMIN-BKBJ
     Indication: Neurotrophic keratopathy
     Route: 047
     Dates: start: 20220607
  2. OXERVATE [Suspect]
     Active Substance: CENEGERMIN-BKBJ
     Indication: Ulcerative keratitis
  3. BIOTIN [Concomitant]
     Active Substance: BIOTIN
  4. FERROUS SULFATE [Concomitant]
     Active Substance: FERROUS SULFATE
     Dosage: 325(65) MG
  5. ACETAMINOPHEN [Concomitant]
     Active Substance: ACETAMINOPHEN
  6. ESOMEPRAZOLE MAGNESIUM [Concomitant]
     Active Substance: ESOMEPRAZOLE MAGNESIUM
  7. ROSUVASTATIN CALCIUM [Concomitant]
     Active Substance: ROSUVASTATIN CALCIUM
  8. ELIQUIS [Concomitant]
     Active Substance: APIXABAN
  9. SPIRONOLACTONE [Concomitant]
     Active Substance: SPIRONOLACTONE
  10. OFLOXACIN [Concomitant]
     Active Substance: OFLOXACIN
  11. TIMOLOL MALEATE [Concomitant]
     Active Substance: TIMOLOL MALEATE
  12. DORZOLAMIDE HYDROCHLORIDE [Concomitant]
     Active Substance: DORZOLAMIDE HYDROCHLORIDE
  13. METOPROLOL SUCCINATE [Concomitant]
     Active Substance: METOPROLOL SUCCINATE
     Dosage: EXTENDED RELEASE FOR 24 HOURS
  14. PREDNISONE [Concomitant]
     Active Substance: PREDNISONE
  15. LORAZEPAM [Concomitant]
     Active Substance: LORAZEPAM
  16. ACYCLOVIR [Concomitant]
     Active Substance: ACYCLOVIR
  17. EZETIMIBE [Concomitant]
     Active Substance: EZETIMIBE
  18. NEOMYCIN-POLYMYXINE-DEXAMETHASONE [Concomitant]
  19. ONDANSETRON [Concomitant]
     Active Substance: ONDANSETRON
     Dosage: RAPID DISSOLUTION

REACTIONS (1)
  - Wrong technique in product usage process [Unknown]

NARRATIVE: CASE EVENT DATE: 20220610
